FAERS Safety Report 9180244 (Version 2)
Quarter: 2013Q1

REPORT INFORMATION
  Report Type: Report from Study
  Country: US (occurrence: US)
  Receive Date: 20130322
  Receipt Date: 20130327
  Transmission Date: 20140127
  Serious: Yes (Hospitalization, Other)
  Sender: FDA-Public Use
  Company Number: US-BIOGENIDEC-2013BI025129

PATIENT
  Age: 30 Year
  Sex: Female
  Weight: 59 kg

DRUGS (5)
  1. TYSABRI [Suspect]
     Indication: MULTIPLE SCLEROSIS
     Route: 042
     Dates: start: 20090702
  2. DEXEDRINE XR [Concomitant]
     Indication: ATTENTION DEFICIT/HYPERACTIVITY DISORDER
  3. DEXEDRINE XR [Concomitant]
     Indication: FATIGUE
  4. DEXEDRINE [Concomitant]
     Indication: ATTENTION DEFICIT/HYPERACTIVITY DISORDER
     Route: 048
  5. DEXEDRINE [Concomitant]
     Indication: FATIGUE
     Route: 048

REACTIONS (1)
  - Ovarian mass [Recovered/Resolved]
